FAERS Safety Report 10960598 (Version 2)
Quarter: 2015Q2

REPORT INFORMATION
  Report Type: Spontaneous
  Country: US (occurrence: US)
  Receive Date: 20150327
  Receipt Date: 20150422
  Transmission Date: 20150821
  Serious: Yes (Death, Other)
  Sender: FDA-Public Use
  Company Number: US-AMGEN-USASP2015028023

PATIENT
  Age: 87 Year
  Sex: Male

DRUGS (1)
  1. PROLIA [Suspect]
     Active Substance: DENOSUMAB
     Indication: OSTEOPOROSIS
     Dosage: UNK
     Route: 065

REACTIONS (34)
  - Renal infarct [Unknown]
  - Renal neoplasm [Unknown]
  - Heart valve calcification [Unknown]
  - Nervous system disorder [Unknown]
  - Spinal osteoarthritis [Unknown]
  - Cardiac amyloidosis [Unknown]
  - Aortic calcification [Unknown]
  - Contusion [Unknown]
  - Skin haemorrhage [Unknown]
  - Nephrosclerosis [Unknown]
  - Aortic stenosis [Unknown]
  - Neoplasm prostate [Unknown]
  - Emphysema [Fatal]
  - Thyroid cyst [Unknown]
  - Aortic disorder [Unknown]
  - Prostatomegaly [Unknown]
  - Cardiac valve disease [Fatal]
  - Hepatic congestion [Unknown]
  - Cerebral arteriosclerosis [Unknown]
  - Fall [Unknown]
  - Intravascular papillary endothelial hyperplasia [Unknown]
  - Nodular regenerative hyperplasia [Unknown]
  - Pneumoconiosis [Unknown]
  - Skin abrasion [Unknown]
  - Ecchymosis [Unknown]
  - Renal atrophy [Unknown]
  - Pleural fibrosis [Unknown]
  - Mitral valve calcification [Unknown]
  - Arteriosclerosis coronary artery [Unknown]
  - Diverticulitis [Unknown]
  - Diverticulum intestinal [Unknown]
  - Arteriosclerosis coronary artery [Fatal]
  - Cerebral atrophy [Unknown]
  - Hyperadrenocorticism [Unknown]
